FAERS Safety Report 4514611-6 (Version None)
Quarter: 2004Q4

REPORT INFORMATION
  Report Type: 
  Country: None (occurrence: None)
  Receive Date: 20041126
  Receipt Date: 20041105
  Transmission Date: 20050328
  Serious: Yes (Death, Other)
  Sender: FDA-Public Use
  Company Number: MAG-2004-0000311

PATIENT
  Age: 76 Year
  Sex: Male

DRUGS (7)
  1. MORPHINE SULFATE [Suspect]
     Indication: CANCER PAIN
     Dosage: SEE IMAGE
     Route: 048
     Dates: start: 20040225, end: 20040227
  2. MORPHINE SULFATE [Suspect]
     Indication: CANCER PAIN
     Dosage: SEE IMAGE
     Route: 048
     Dates: start: 20040228, end: 20040303
  3. MORPHINE [Suspect]
     Indication: CANCER PAIN
     Dosage: 50 MG,DAILY, INTRAVENOUS
     Route: 042
     Dates: start: 20040310
  4. CISPLATIN [Concomitant]
  5. SOLU-MEDROL [Concomitant]
  6. FLUOROURACIL [Concomitant]
  7. HALOPERIDOL [Concomitant]

REACTIONS (8)
  - DELIRIUM [None]
  - GASTRIC CANCER [None]
  - HALLUCINATION [None]
  - HALLUCINATION, VISUAL [None]
  - INSOMNIA [None]
  - LYMPHANGIOSIS CARCINOMATOSA [None]
  - MALIGNANT NEOPLASM PROGRESSION [None]
  - PNEUMONIA [None]
